FAERS Safety Report 10146728 (Version 2)
Quarter: 2014Q2

REPORT INFORMATION
  Report Type: Spontaneous
  Country: US (occurrence: US)
  Receive Date: 20140501
  Receipt Date: 20140602
  Transmission Date: 20141212
  Serious: Yes (Hospitalization, Other)
  Sender: FDA-Public Use
  Company Number: US-BAXTER-2014BAX020678

PATIENT
  Age: 55 Year
  Sex: Male
  Weight: 72.8 kg

DRUGS (1)
  1. DIANEAL LOW CALCIUM [Suspect]
     Indication: RENAL FAILURE CHRONIC
     Route: 033
     Dates: start: 201308

REACTIONS (2)
  - Pneumonia [Recovered/Resolved]
  - Ulcer haemorrhage [Recovered/Resolved]
